FAERS Safety Report 4985599-9 (Version None)
Quarter: 2006Q2

REPORT INFORMATION
  Report Type: 
  Country: None (occurrence: None)
  Receive Date: 20060426
  Receipt Date: 20060426
  Transmission Date: 20061013
  Serious: Yes (Death, Hospitalization)
  Sender: FDA-Public Use
  Company Number: None

PATIENT
  Sex: Male
  Weight: 52.73 kg

DRUGS (10)
  1. CISPLATIN [Suspect]
     Indication: HYPOPHARYNGEAL CANCER
     Dates: start: 20040901, end: 20041101
  2. CISPLATIN [Suspect]
     Indication: OROPHARYNGEAL CANCER STAGE UNSPECIFIED
     Dates: start: 20040901, end: 20041101
  3. CISPLATIN [Suspect]
     Indication: PHARYNGEAL CANCER STAGE UNSPECIFIED
     Dates: start: 20040901, end: 20041101
  4. CISPLATIN [Suspect]
     Indication: SQUAMOUS CELL CARCINOMA
     Dates: start: 20040901, end: 20041101
  5. CISPLATIN [Suspect]
     Indication: HYPOPHARYNGEAL CANCER
     Dates: start: 20060410
  6. CISPLATIN [Suspect]
     Indication: OROPHARYNGEAL CANCER STAGE UNSPECIFIED
     Dates: start: 20060410
  7. CISPLATIN [Suspect]
     Indication: PHARYNGEAL CANCER STAGE UNSPECIFIED
     Dates: start: 20060410
  8. CISPLATIN [Suspect]
     Indication: SQUAMOUS CELL CARCINOMA
     Dates: start: 20060410
  9. RADIATION THERAPY [Suspect]
     Dates: start: 20040901, end: 20041101
  10. RADIATION THERAPY [Suspect]
     Dates: start: 20060410

REACTIONS (10)
  - BACTERIAL CULTURE POSITIVE [None]
  - BETA HAEMOLYTIC STREPTOCOCCAL INFECTION [None]
  - BLOOD PRESSURE DIASTOLIC DECREASED [None]
  - BODY TEMPERATURE INCREASED [None]
  - DYSPNOEA [None]
  - LIP DISCOLOURATION [None]
  - LUNG INFILTRATION [None]
  - OXYGEN SATURATION DECREASED [None]
  - PAIN [None]
  - RESPIRATORY RATE INCREASED [None]
